FAERS Safety Report 5196015-9 (Version None)
Quarter: 2006Q4

REPORT INFORMATION
  Report Type: 
  Country: None (occurrence: None)
  Receive Date: 20061227
  Receipt Date: 20061227
  Transmission Date: 20070319
  Serious: No
  Sender: FDA-Public Use
  Company Number: None

PATIENT
  Age: 59 Year
  Sex: Male
  Weight: 88.4514 kg

DRUGS (8)
  1. REMICADE [Suspect]
     Indication: RHEUMATOID ARTHRITIS
     Dosage: 270 MG Q 6 WKS IV
     Route: 042
     Dates: start: 20060717
  2. REMICADE [Suspect]
     Indication: RHEUMATOID ARTHRITIS
     Dosage: 270 MG Q 6 WKS IV
     Route: 042
     Dates: start: 20060913
  3. REMICADE [Suspect]
     Indication: RHEUMATOID ARTHRITIS
     Dosage: 270 MG Q 6 WKS IV
     Route: 042
     Dates: start: 20061108
  4. REMICADE [Suspect]
     Indication: RHEUMATOID ARTHRITIS
     Dosage: 270 MG Q 6 WKS IV
     Route: 042
     Dates: start: 20061221
  5. PREDNISONE TAB [Concomitant]
  6. DARVOCET [Concomitant]
  7. VICODIN [Concomitant]
  8. CALCIUM [Concomitant]

REACTIONS (3)
  - CHILLS [None]
  - MUSCLE RIGIDITY [None]
  - TREMOR [None]
